FAERS Safety Report 15740670 (Version 1)
Quarter: 2018Q4

REPORT INFORMATION
  Report Type: Spontaneous
  Country: ES (occurrence: ES)
  Receive Date: 20181219
  Receipt Date: 20181219
  Transmission Date: 20190205
  Serious: Yes (Other)
  Sender: FDA-Public Use
  Company Number: ES-GLAXOSMITHKLINE-ES2018226264

PATIENT
  Age: 62 Year
  Sex: Female

DRUGS (8)
  1. AVAMYS [Concomitant]
     Active Substance: FLUTICASONE FUROATE
     Indication: SINUSITIS
     Dosage: 55 ?G, UNK
     Route: 045
  2. LORMETAZEPAM [Concomitant]
     Active Substance: LORMETAZEPAM
     Indication: PRODUCT USED FOR UNKNOWN INDICATION
     Dosage: 1 MG, QD
     Route: 048
  3. FUROSEMIDE. [Concomitant]
     Active Substance: FUROSEMIDE
     Indication: HYPERTENSION
     Dosage: 40 MG, QD
     Route: 048
  4. FOSTER NEXTHALER [Concomitant]
     Indication: ASTHMA
     Dosage: 2 DF, UNK
     Route: 055
  5. ZINNAT [Suspect]
     Active Substance: CEFUROXIME AXETIL
     Indication: TRACHEITIS
     Dosage: 500 MG, UNK
     Route: 048
     Dates: start: 20181108, end: 20181108
  6. LANSOPRAZOL [Concomitant]
     Active Substance: LANSOPRAZOLE
     Indication: PRODUCT USED FOR UNKNOWN INDICATION
     Dosage: 30 MG, QD
     Route: 048
  7. TERBASMIN TURBUHALER [Concomitant]
     Active Substance: TERBUTALINE SULFATE
     Indication: ASTHMA
     Dosage: 500 ?G, UNK
     Route: 055
  8. HYDROCHLOROTHIAZIDE + VALSARTAN [Concomitant]
     Active Substance: HYDROCHLOROTHIAZIDE\VALSARTAN
     Indication: HYPERTENSION
     Dosage: 160/25 MG BY DF
     Route: 048

REACTIONS (4)
  - Urticaria [Recovered/Resolved]
  - Respiratory distress [Recovered/Resolved]
  - Palpitations [Recovered/Resolved]
  - Pruritus [Recovered/Resolved]

NARRATIVE: CASE EVENT DATE: 20181108
